FAERS Safety Report 9263930 (Version 1)
Quarter: 2013Q2

REPORT INFORMATION
  Report Type: Spontaneous
  Country: IN (occurrence: IN)
  Receive Date: 20130430
  Receipt Date: 20130430
  Transmission Date: 20140414
  Serious: Yes (Hospitalization, Other)
  Sender: FDA-Public Use
  Company Number: IN-BRISTOL-MYERS SQUIBB COMPANY-18805861

PATIENT
  Sex: Female

DRUGS (2)
  1. TAXOL INJ [Suspect]
     Indication: BREAST CANCER
     Dosage: 1 DF: 12 UNIT NOS
     Dates: start: 201301
  2. HERCEPTIN [Suspect]
     Indication: BREAST CANCER
     Dates: start: 201301

REACTIONS (4)
  - Pneumonitis [Recovered/Resolved]
  - Pericardial effusion [Unknown]
  - Tachycardia [Unknown]
  - Pleural effusion [Recovered/Resolved]
